FAERS Safety Report 21707181 (Version 1)
Quarter: 2022Q4

REPORT INFORMATION
  Report Type: Report from Study
  Country: IL (occurrence: IL)
  Receive Date: 20221209
  Receipt Date: 20221209
  Transmission Date: 20230112
  Serious: Yes (Hospitalization)
  Sender: FDA-Public Use
  Company Number: IL-TAKEDA-IL201813010

PATIENT
  Sex: Male

DRUGS (3)
  1. VELAGLUCERASE ALFA [Suspect]
     Active Substance: VELAGLUCERASE ALFA
     Indication: Gaucher^s disease
     Dosage: 15 IU/KG, 1X/2WKS
     Route: 065
     Dates: start: 20110925
  2. ASPIRIN [Concomitant]
     Active Substance: ASPIRIN
     Indication: Transient ischaemic attack
     Dosage: 75 MILLIGRAM, QD
     Route: 048
     Dates: start: 2016
  3. CORTIZONE 10 [Concomitant]
     Active Substance: HYDROCORTISONE
     Indication: Arthralgia
     Dosage: UNK UNK, SINGLE
     Route: 030
     Dates: start: 201705, end: 201705

REACTIONS (1)
  - Forearm fracture [Recovered/Resolved]

NARRATIVE: CASE EVENT DATE: 20180403
